FAERS Safety Report 4459505-X (Version None)
Quarter: 2004Q3

REPORT INFORMATION
  Report Type: 
  Country: None (occurrence: None)
  Receive Date: 20040910
  Receipt Date: 20040618
  Transmission Date: 20050211
  Serious: Yes (Hospitalization)
  Sender: FDA-Public Use
  Company Number: 2004219635US

PATIENT
  Age: 82 Year
  Sex: Female
  Weight: 48.3 kg

DRUGS (12)
  1. BEXTRA [Suspect]
     Indication: BACK PAIN
     Dosage: 10 MG, QD, ORAL
     Route: 048
     Dates: end: 20040201
  2. CALCIUM [Concomitant]
  3. MULTIVITAMINS (PANTHENOL, RETINOL, ERGOCALCIFEROL) [Concomitant]
  4. SPIRONOLACTONE [Concomitant]
  5. FUROSEMIDE [Concomitant]
  6. FOLIC ACID [Concomitant]
  7. SODIUM BICARBONATE [Concomitant]
  8. PANCRELIPASE (PANCRELIPASE) [Concomitant]
  9. DIOVAN [Concomitant]
  10. NORVASC [Concomitant]
  11. EVISTA [Concomitant]
  12. IRON [Concomitant]

REACTIONS (1)
  - RENAL FAILURE ACUTE [None]
